FAERS Safety Report 7884549-5 (Version None)
Quarter: 2011Q4

REPORT INFORMATION
  Report Type: 
  Country: None (occurrence: None)
  Receive Date: 20111102
  Receipt Date: 20111028
  Transmission Date: 20120403
  Serious: Yes (Hospitalization)
  Sender: FDA-Public Use
  Company Number: FR-PFIZER INC-2011265134

PATIENT
  Age: 73 Year
  Sex: Female
  Weight: 153 kg

DRUGS (3)
  1. EPLERENONE [Suspect]
     Indication: CYTOTOXIC CARDIOMYOPATHY
     Dosage: 25 MG, 1X/DAY
     Dates: start: 20081107
  2. LASIX [Concomitant]
     Dosage: 40 MG, UNK
  3. LASIX [Concomitant]
     Dosage: UNK
     Dates: start: 20080101

REACTIONS (2)
  - IRON DEFICIENCY ANAEMIA [None]
  - POLYP [None]
